FAERS Safety Report 9037090 (Version 5)
Quarter: 2014Q4

REPORT INFORMATION
  Report Type: Spontaneous
  Country: JP (occurrence: JP)
  Receive Date: 20130129
  Receipt Date: 20141109
  Transmission Date: 20150529
  Serious: Yes (Life-Threatening, Other)
  Sender: FDA-Public Use
  Company Number: JP-009507513-1301JPN012215

PATIENT
  Age: 74 Year
  Sex: Male
  Weight: 71 kg

DRUGS (3)
  1. ESLAX [Suspect]
     Active Substance: ROCURONIUM BROMIDE
     Indication: NEUROMUSCULAR BLOCKING THERAPY
     Dosage: 240 MG, DIVIDED DOSE FREQUENCY UNKNOWN
     Route: 042
     Dates: start: 20121119, end: 20121119
  2. BRIDION INTRAVENOUS 200MG [Suspect]
     Active Substance: SUGAMMADEX
     Indication: NEUROMUSCULAR BLOCKADE REVERSAL
     Dosage: 200 MG, BID,ROUTE IV UNSPECIFIED.
     Route: 042
     Dates: start: 20121119, end: 20121119
  3. SEVOFLURANE. [Concomitant]
     Active Substance: SEVOFLURANE
     Indication: MAINTENANCE OF ANAESTHESIA
     Dosage: DAILY DOSE UNKNOWN, FORMULATION; INHALATION
     Route: 055

REACTIONS (6)
  - Hypotonia [Recovered/Resolved]
  - Recurrence of neuromuscular blockade [Recovered/Resolved]
  - Neuromuscular block prolonged [Recovered/Resolved]
  - Cyanosis [Recovered/Resolved]
  - Overdose [Unknown]
  - Respiratory arrest [Recovered/Resolved]

NARRATIVE: CASE EVENT DATE: 20121119
